FAERS Safety Report 6059678-1 (Version None)
Quarter: 2009Q1

REPORT INFORMATION
  Report Type: 
  Country: None (occurrence: None)
  Receive Date: 20090130
  Receipt Date: 20070914
  Transmission Date: 20090719
  Serious: Yes (Other)
  Sender: FDA-Public Use
  Company Number: FR-ABBOTT-07P-056-0354601-00

PATIENT
  Sex: Female

DRUGS (8)
  1. RITONAVIR SOFT GELATIN CAPSULES [Suspect]
     Indication: HIV INFECTION
     Route: 048
     Dates: start: 20040601, end: 20061221
  2. LEVOTHYROX [Concomitant]
     Indication: HIV INFECTION
     Route: 048
  3. TRUVADA [Concomitant]
     Indication: DRUG USE FOR UNKNOWN INDICATION
     Route: 048
     Dates: start: 20050101, end: 20061221
  4. ATAZANAVIR [Concomitant]
     Indication: HIV INFECTION
     Route: 048
     Dates: start: 20040601, end: 20061221
  5. LAMIVUDINE + ZIDOVUDINE [Concomitant]
     Indication: DRUG USE FOR UNKNOWN INDICATION
     Dosage: NOT REPORTED
  6. SAQUINAVIR [Concomitant]
     Indication: DRUG USE FOR UNKNOWN INDICATION
     Dosage: NOT REPORTED
  7. LEVOTHYOXINE SODIC [Concomitant]
     Indication: HYPOTHYROIDISM
     Dosage: NOT REPORTED
  8. EMTRICITABINE/TENOFOVIR/DISOPROXIL [Concomitant]
     Indication: HIV INFECTION
     Dosage: NOT REPORTED

REACTIONS (2)
  - ABORTION INDUCED [None]
  - ECTOPIC PREGNANCY [None]
